FAERS Safety Report 7939721-2 (Version None)
Quarter: 2011Q4

REPORT INFORMATION
  Report Type: 
  Country: None (occurrence: None)
  Receive Date: 20111125
  Receipt Date: 20111118
  Transmission Date: 20120403
  Serious: Yes (Hospitalization, Other)
  Sender: FDA-Public Use
  Company Number: PHEH2007US01093

PATIENT
  Sex: Female

DRUGS (52)
  1. IONAMIN [Concomitant]
     Dosage: 15 MG
  2. ROXICET [Concomitant]
     Dosage: 5/325 MG
  3. MS CONTIN [Concomitant]
     Dosage: 100 MG
  4. AROMASIN [Concomitant]
     Dosage: 25 MG
  5. DIPHENHYDRAMINE HCL [Concomitant]
  6. PACLITAXEL [Concomitant]
  7. AREDIA [Suspect]
     Dates: start: 20021105, end: 20060220
  8. LAMICTAL [Concomitant]
     Dosage: 200 MG, UNK
  9. DURAGESIC-100 [Concomitant]
     Dosage: 100 MCG/HR
  10. VINORELBINE [Concomitant]
  11. IBUPROFEN (ADVIL) [Concomitant]
  12. CLINDAMYCIN [Concomitant]
     Dosage: 300 MG, UNK
  13. ACETAMINOPHEN W/ CODEINE [Concomitant]
  14. PROPOXYPHENE NAPSYLATE W/ ACETAMINOPHEN [Concomitant]
  15. SODIUM CHLORIDE [Concomitant]
  16. LASIX [Concomitant]
  17. BACTROBAN                               /NET/ [Concomitant]
     Dosage: 2%
  18. AMBIEN [Concomitant]
     Dosage: 10 MG
  19. CIPROFLOXACIN HYDROCHLORIDE [Concomitant]
     Dosage: 500 MG
  20. KYTRIL [Concomitant]
  21. ALOXI [Concomitant]
  22. FASLODEX [Concomitant]
  23. POTASSIUM CHLORIDE [Concomitant]
  24. XANAX [Concomitant]
  25. ALEVE                              /00256202/ [Concomitant]
  26. LETROZOLE [Concomitant]
  27. VICODIN [Concomitant]
     Dosage: 5/500 MG
  28. KEFLEX [Concomitant]
     Dosage: 500 MG, UNK
  29. LORAZEPAM [Concomitant]
     Dosage: 1 MG
  30. DILAUDID [Concomitant]
     Dosage: 4 MG
  31. ALPRAZOLAM [Concomitant]
     Dosage: 0.5 MG
  32. GENTAK [Concomitant]
     Dosage: 3 MG/GM
  33. PERCOCET [Concomitant]
     Dosage: 5/325 MG
  34. FUROSEMIDE [Concomitant]
     Dosage: 20 MG
  35. GEMZAR [Concomitant]
  36. AREDIA [Suspect]
     Indication: RESORPTION BONE INCREASED
     Dosage: UNK
     Route: 042
     Dates: start: 20010402, end: 20020204
  37. ZOMETA [Suspect]
     Indication: RESORPTION BONE INCREASED
     Dates: start: 20020506, end: 20020805
  38. AMOXICILLIN [Concomitant]
     Dosage: 500 MG
  39. HYDROMORPHONE HCL [Concomitant]
     Dosage: 4 MG
  40. CARBOPLATIN [Concomitant]
  41. ABRAXANE [Concomitant]
  42. RADIATION [Concomitant]
  43. MORPHINE SULFATE [Concomitant]
     Dosage: 15 MG
  44. OXYCODONE HCL [Concomitant]
     Dosage: 80 MG
  45. BIAXIN [Concomitant]
     Dosage: 500 MG
  46. METHADOSE [Concomitant]
     Dosage: 10 MG
  47. TYLENOL W/ CODEINE [Concomitant]
  48. TEMOVATE [Concomitant]
     Dosage: 0.05%
  49. CEPHALEXIN [Concomitant]
     Dosage: 500 MG
  50. OXYCONTIN [Concomitant]
     Dosage: 80 MG
  51. DEXAMETHASONE [Concomitant]
  52. ZANTAC [Concomitant]

REACTIONS (38)
  - PULMONARY FIBROSIS [None]
  - HIATUS HERNIA [None]
  - OSTEONECROSIS OF JAW [None]
  - BREAST CANCER RECURRENT [None]
  - MASS [None]
  - LYMPHADENOPATHY [None]
  - PARAESTHESIA [None]
  - INTERVERTEBRAL DISC SPACE NARROWING [None]
  - EMOTIONAL DISTRESS [None]
  - HEPATIC STEATOSIS [None]
  - RENAL CYST [None]
  - METASTASES TO BONE [None]
  - PANCREATIC CYST [None]
  - RADICULITIS [None]
  - SPINAL COMPRESSION FRACTURE [None]
  - METASTASES TO LUNG [None]
  - HYPOAESTHESIA [None]
  - VERTEBRAL FORAMINAL STENOSIS [None]
  - INJURY [None]
  - DECREASED INTEREST [None]
  - SPLENOMEGALY [None]
  - MALAISE [None]
  - OEDEMA [None]
  - BACK PAIN [None]
  - INTERVERTEBRAL DISC DEGENERATION [None]
  - PAIN [None]
  - LUNG NEOPLASM [None]
  - METASTASES TO LIVER [None]
  - FACET JOINT SYNDROME [None]
  - SPONDYLOLISTHESIS [None]
  - PLATELET COUNT DECREASED [None]
  - METASTASES TO SPINE [None]
  - METASTASES TO PELVIS [None]
  - INTERVERTEBRAL DISC PROTRUSION [None]
  - HEPATITIS C [None]
  - HYPOKALAEMIA [None]
  - FATIGUE [None]
  - PAIN IN EXTREMITY [None]
